FAERS Safety Report 5411964-1 (Version None)
Quarter: 2007Q3

REPORT INFORMATION
  Report Type: 
  Country: None (occurrence: None)
  Receive Date: 20070810
  Receipt Date: 20070810
  Transmission Date: 20080115
  Serious: Yes (Hospitalization)
  Sender: FDA-Public Use
  Company Number: None

PATIENT
  Sex: Female
  Weight: 73.6 kg

DRUGS (3)
  1. CISPLATIN [Suspect]
     Dosage: 80 MG
  2. ETOPOSIDE [Suspect]
     Dosage: 300 MG
  3. CAMPTOSAR [Suspect]
     Dosage: 190 MG

REACTIONS (9)
  - ASPERGILLOSIS [None]
  - ASTHENIA [None]
  - ATRIAL FIBRILLATION [None]
  - CEREBRAL INFARCTION [None]
  - CHEST PAIN [None]
  - CHEST X-RAY ABNORMAL [None]
  - DYSPNOEA [None]
  - METASTASES TO BONE [None]
  - PYREXIA [None]
